FAERS Safety Report 9825637 (Version 1)
Quarter: 2013Q4

REPORT INFORMATION
  Report Type: Spontaneous
  Country: US (occurrence: None)
  Receive Date: 20131101
  Receipt Date: 20131101
  Transmission Date: 20140711
  Serious: Yes (Other)
  Sender: FDA-Public Use
  Company Number: ALL1-2013-05146

PATIENT
  Age: 15 Year
  Sex: Male
  Weight: 54.2 kg

DRUGS (1)
  1. INTUNIV [Suspect]
     Indication: ATTENTION DEFICIT/HYPERACTIVITY DISORDER
     Route: 048
     Dates: start: 20130517, end: 201305

REACTIONS (4)
  - Loss of consciousness [None]
  - Hypoaesthesia [None]
  - Drug hypersensitivity [None]
  - Inappropriate schedule of drug administration [None]
